FAERS Safety Report 7395807-5 (Version None)
Quarter: 2011Q2

REPORT INFORMATION
  Report Type: 
  Country: None (occurrence: None)
  Receive Date: 20110405
  Receipt Date: 20110329
  Transmission Date: 20111010
  Serious: Yes (Hospitalization)
  Sender: FDA-Public Use
  Company Number: US-RB-022236-11

PATIENT
  Age: 50 Year
  Sex: Female

DRUGS (1)
  1. SUBOXONE [Suspect]
     Indication: PRODUCT USED FOR UNKNOWN INDICATION
     Dosage: SUBLINGUAL FILM; DOSING INFORMATION UNKNOWN
     Route: 065
     Dates: end: 20110301

REACTIONS (6)
  - APATHY [None]
  - PAIN [None]
  - FATIGUE [None]
  - PULMONARY EMBOLISM [None]
  - HEADACHE [None]
  - CHEST PAIN [None]
